FAERS Safety Report 16994445 (Version 1)
Quarter: 2019Q4

REPORT INFORMATION
  Report Type: Other
  Country: GB (occurrence: GB)
  Receive Date: 20191105
  Receipt Date: 20191105
  Transmission Date: 20200122
  Serious: Yes (Life-Threatening, Hospitalization, Disabling)
  Sender: FDA-Public Use
  Company Number: GB-STRIDES ARCOLAB LIMITED-2019SP011024

PATIENT
  Age: 60 Year
  Sex: Male
  Weight: 76 kg

DRUGS (5)
  1. IBUPROFEN. [Suspect]
     Active Substance: IBUPROFEN
     Indication: NECK PAIN
     Dosage: 800 MILLIGRAM PER DAY, PHARMACEUTICAL DOSE FORM: 5
     Route: 048
     Dates: start: 20180620, end: 20180621
  2. IBUPROFEN. [Suspect]
     Active Substance: IBUPROFEN
     Dosage: 1200 MILLIGRAM PER DAY, PHARMACEUTICAL DOSE FORM: 5
     Route: 048
     Dates: start: 20180623, end: 20180623
  3. IBUPROFEN. [Suspect]
     Active Substance: IBUPROFEN
     Dosage: 400 MILLIGRAM PER DAY, PHARMACEUTICAL DOSE FORM: 5
     Route: 048
     Dates: start: 20180622, end: 20180622
  4. IBUPROFEN. [Suspect]
     Active Substance: IBUPROFEN
     Indication: MIGRAINE
     Dosage: 1200 MILLIGRAM PER DAY, PHARMACEUTICAL DOSE FORM: 5
     Route: 048
     Dates: start: 20180618, end: 20180619
  5. IBUPROFEN. [Suspect]
     Active Substance: IBUPROFEN
     Dosage: 400 MILLIGRAM PER DAY, PHARMACEUTICAL DOSE FORM: 5
     Route: 048
     Dates: start: 20180624, end: 20180624

REACTIONS (3)
  - Myocardial infarction [Recovered/Resolved]
  - Unresponsive to stimuli [Unknown]
  - Cardiac arrest [Recovered/Resolved]

NARRATIVE: CASE EVENT DATE: 20180624
